FAERS Safety Report 7064289-5 (Version None)
Quarter: 2010Q4

REPORT INFORMATION
  Report Type: 
  Country: None (occurrence: None)
  Receive Date: 20101025
  Receipt Date: 20101025
  Transmission Date: 20110411
  Serious: Yes (Hospitalization)
  Sender: FDA-Public Use
  Company Number: None

PATIENT
  Age: 63 Year
  Sex: Male
  Weight: 63 kg

DRUGS (4)
  1. BEVACIZUMAB [Suspect]
     Indication: OESOPHAGEAL CANCER METASTATIC
     Dosage: 10MG/KGQ3WEEKS
  2. DOCETAXEL [Suspect]
     Indication: OESOPHAGEAL CANCER METASTATIC
     Dosage: 30MG/M2D1D8
  3. CISPLATIN [Suspect]
     Indication: OESOPHAGEAL CANCER METASTATIC
     Dosage: 30 MG/M2D1D8
  4. IRINOTECAN HCL [Suspect]
     Indication: OESOPHAGEAL CANCER METASTATIC
     Dosage: 65MG/M2D1D8

REACTIONS (1)
  - PULMONARY EMBOLISM [None]
